FAERS Safety Report 9724538 (Version 2)
Quarter: 2014Q1

REPORT INFORMATION
  Report Type: Spontaneous
  Country: US (occurrence: US)
  Receive Date: 20131202
  Receipt Date: 20140102
  Transmission Date: 20141002
  Serious: No
  Sender: FDA-Public Use
  Company Number: US-AMGEN-USASP2013081340

PATIENT
  Age: 8 Month
  Sex: Male

DRUGS (1)
  1. ENBREL [Suspect]
     Indication: PRODUCT USED FOR UNKNOWN INDICATION
     Dosage: UNK
     Route: 063
     Dates: start: 20131007

REACTIONS (2)
  - Dry skin [Not Recovered/Not Resolved]
  - Rash papular [Not Recovered/Not Resolved]
